FAERS Safety Report 25857131 (Version 2)
Quarter: 2025Q4

REPORT INFORMATION
  Report Type: Spontaneous
  Country: JP (occurrence: JP)
  Receive Date: 20250929
  Receipt Date: 20251013
  Transmission Date: 20260117
  Serious: Yes (Death, Hospitalization, Other)
  Sender: AMGEN
  Company Number: JP-AMGEN-JPNSP2025191307

PATIENT

DRUGS (2)
  1. BEVACIZUMAB [Suspect]
     Active Substance: BEVACIZUMAB
     Indication: Brain stem glioma
     Dosage: UNK, INTRAVENOUS DRIP INFUSION
     Route: 040
  2. TEMOZOLOMIDE [Concomitant]
     Active Substance: TEMOZOLOMIDE

REACTIONS (5)
  - Death [Fatal]
  - Brain stem glioma [Unknown]
  - Unevaluable event [Unknown]
  - Cerebral ventricle dilatation [Unknown]
  - Off label use [Unknown]
